FAERS Safety Report 6593622-3 (Version None)
Quarter: 2010Q1

REPORT INFORMATION
  Report Type: 
  Country: None (occurrence: None)
  Receive Date: 20100222
  Receipt Date: 20090909
  Transmission Date: 20100710
  Serious: No
  Sender: FDA-Public Use
  Company Number: US-BRISTOL-MYERS SQUIBB COMPANY-14772925

PATIENT
  Age: 39 Year
  Sex: Female
  Weight: 54 kg

DRUGS (5)
  1. ORENCIA [Suspect]
     Indication: RHEUMATOID ARTHRITIS
     Dosage: STARTED 2 MONTHS AGO
  2. ORTHO-NOVUM [Concomitant]
  3. FISH OIL [Concomitant]
  4. MULTI-VITAMIN [Concomitant]
  5. MELATONIN [Concomitant]

REACTIONS (1)
  - APHTHOUS STOMATITIS [None]
